FAERS Safety Report 20525101 (Version 1)
Quarter: 2022Q1

REPORT INFORMATION
  Report Type: Other
  Country: None (occurrence: US)
  Receive Date: 20220228
  Receipt Date: 20220228
  Transmission Date: 20220423
  Serious: Yes (Hospitalization)
  Sender: FDA-Public Use
  Company Number: US-Appco Pharma LLC-2126270

PATIENT
  Age: 34 Year
  Sex: Female

DRUGS (2)
  1. VENLAFAXINE [Suspect]
     Active Substance: VENLAFAXINE HYDROCHLORIDE
     Indication: Insomnia
     Route: 065
  2. TIANEPTINE [Suspect]
     Active Substance: TIANEPTINE
     Route: 065

REACTIONS (2)
  - Overdose [Unknown]
  - Status epilepticus [Unknown]
